FAERS Safety Report 19346791 (Version 2)
Quarter: 2021Q4

REPORT INFORMATION
  Report Type: Spontaneous
  Country: US (occurrence: US)
  Receive Date: 20210531
  Receipt Date: 20211119
  Transmission Date: 20220303
  Serious: Yes (Disabling, Other)
  Sender: FDA-Public Use
  Company Number: US-PURDUE-USA-2020-0204753

PATIENT
  Age: 32 Year
  Sex: Male

DRUGS (2)
  1. OXYCONTIN [Suspect]
     Active Substance: OXYCODONE HYDROCHLORIDE
     Indication: Back pain
     Dosage: UNKNOWN
     Route: 048
  2. ANDROGEL [Suspect]
     Active Substance: TESTOSTERONE
     Indication: Hormone therapy
     Dosage: UNKNOWN
     Route: 065

REACTIONS (5)
  - Disability [Unknown]
  - Drug dependence [Unknown]
  - Drug abuse [Unknown]
  - Infertility [Unknown]
  - Drug withdrawal syndrome [Unknown]
